FAERS Safety Report 11398615 (Version 1)
Quarter: 2015Q3

REPORT INFORMATION
  Report Type: Spontaneous
  Country: CA (occurrence: CA)
  Receive Date: 20150820
  Receipt Date: 20150820
  Transmission Date: 20151125
  Serious: Yes (Other)
  Sender: FDA-Public Use
  Company Number: CA-SA-2015SA120299

PATIENT
  Age: 52 Year
  Sex: Female
  Weight: 97.51 kg

DRUGS (16)
  1. ARAVA [Suspect]
     Active Substance: LEFLUNOMIDE
     Route: 048
     Dates: start: 2010
  2. METHOTREXATE [Suspect]
     Active Substance: METHOTREXATE
     Route: 048
     Dates: start: 2009
  3. NAPROSYN [Concomitant]
     Active Substance: NAPROXEN
  4. METFORMIN [Concomitant]
     Active Substance: METFORMIN HYDROCHLORIDE
  5. ACTEMRA [Suspect]
     Active Substance: TOCILIZUMAB
     Dosage: DOSE: 4-8 MG/KG, ?FREQUENCY: MONTHLY
     Route: 042
  6. RAMIPRIL. [Concomitant]
     Active Substance: RAMIPRIL
  7. LOZIDE [Concomitant]
     Active Substance: INDAPAMIDE
  8. ORENCIA [Suspect]
     Active Substance: ABATACEPT
     Route: 042
     Dates: start: 2012, end: 2014
  9. ASA [Concomitant]
     Active Substance: ASPIRIN
  10. VITAMIN D [Concomitant]
     Active Substance: CHOLECALCIFEROL
  11. PLAQUENIL [Suspect]
     Active Substance: HYDROXYCHLOROQUINE SULFATE
     Route: 048
     Dates: start: 2009, end: 2014
  12. ENBREL [Suspect]
     Active Substance: ETANERCEPT
     Indication: RHEUMATOID ARTHRITIS
     Dosage: FREQUENCY: WEEKLY
     Route: 058
     Dates: start: 20101004, end: 20110416
  13. METHOTREXATE [Suspect]
     Active Substance: METHOTREXATE
     Route: 030
     Dates: end: 2014
  14. PREDNISONE. [Concomitant]
     Active Substance: PREDNISONE
  15. LANTUS [Concomitant]
     Active Substance: INSULIN GLARGINE
  16. CALCIUM [Concomitant]
     Active Substance: CALCIUM

REACTIONS (6)
  - Drug ineffective [Unknown]
  - Rheumatoid arthritis [Unknown]
  - Interstitial lung disease [Unknown]
  - Impaired work ability [Unknown]
  - Red blood cell sedimentation rate abnormal [Unknown]
  - Drug effect decreased [Unknown]

NARRATIVE: CASE EVENT DATE: 20101004
